FAERS Safety Report 15301295 (Version 1)
Quarter: 2018Q3

REPORT INFORMATION
  Report Type: Spontaneous
  Country: US (occurrence: US)
  Receive Date: 20180821
  Receipt Date: 20180821
  Transmission Date: 20181010
  Serious: No
  Sender: FDA-Public Use
  Company Number: US-MALLINCKRODT-T201801016

PATIENT
  Sex: Male
  Weight: 99 kg

DRUGS (3)
  1. LISINOPRIL. [Concomitant]
     Active Substance: LISINOPRIL
     Indication: PRODUCT USED FOR UNKNOWN INDICATION
     Dosage: UNK
  2. PROSCAR [Concomitant]
     Active Substance: FINASTERIDE
     Indication: PRODUCT USED FOR UNKNOWN INDICATION
     Dosage: UNK
  3. OXYCODONE/ACETAMINOPHEN [Suspect]
     Active Substance: ACETAMINOPHEN\OXYCODONE HYDROCHLORIDE
     Indication: PAIN
     Dosage: 10/325 MG, CUT IN HALF ? UP TO 4 HALVES IN 1 DAY
     Route: 048
     Dates: start: 20180301

REACTIONS (9)
  - Hot flush [Unknown]
  - Mental impairment [Unknown]
  - Drug effect incomplete [Unknown]
  - Feeling hot [Unknown]
  - Vision blurred [Unknown]
  - Eye movement disorder [Unknown]
  - Heart rate abnormal [Unknown]
  - Malaise [Unknown]
  - Wrong technique in product usage process [Unknown]
